FAERS Safety Report 8302633-9 (Version None)
Quarter: 2012Q2

REPORT INFORMATION
  Report Type: 
  Country: None (occurrence: None)
  Receive Date: 20120420
  Receipt Date: 20120411
  Transmission Date: 20120825
  Serious: Yes (Hospitalization)
  Sender: FDA-Public Use
  Company Number: GB-ASTRAZENECA-2011SE60905

PATIENT
  Age: 13766 Day
  Sex: Female

DRUGS (15)
  1. LORTAB [Concomitant]
     Route: 048
     Dates: start: 20110831
  2. BACLOFEN [Concomitant]
     Indication: MUSCLE SPASMS
     Route: 048
     Dates: start: 20090101
  3. PROZAC [Suspect]
     Indication: DEPRESSION
     Route: 048
     Dates: start: 20090101
  4. ZOCOR [Concomitant]
     Indication: BLOOD CHOLESTEROL INCREASED
     Route: 048
     Dates: start: 20100101
  5. NKTR-118 CODE NOT BROKEN [Concomitant]
     Indication: CONSTIPATION
     Dosage: ONCE DAILY
     Route: 048
     Dates: start: 20110830, end: 20111003
  6. SEROQUEL [Concomitant]
     Indication: DEPRESSION
     Route: 048
     Dates: start: 20000101
  7. KEFZOL [Concomitant]
     Indication: LACERATION
     Route: 042
     Dates: start: 20111003, end: 20111003
  8. XANAX [Concomitant]
     Indication: ANXIETY
     Route: 048
     Dates: start: 20090101
  9. GABAPENTIN [Concomitant]
     Indication: NEUROPATHY PERIPHERAL
     Route: 048
     Dates: start: 20080101
  10. ZOFRAN [Concomitant]
     Indication: NAUSEA
     Route: 042
     Dates: start: 20111003, end: 20111003
  11. MOBIC [Concomitant]
     Indication: ARTHRITIS
     Route: 048
     Dates: start: 20080101
  12. LISINOPRIL AND HYDROCHLOROTHIAZIDE [Suspect]
     Indication: HYPERTENSION
     Dosage: 20/12.5 MG DAILY
     Route: 048
     Dates: start: 20100101, end: 20111003
  13. SEROQUEL [Concomitant]
     Indication: INSOMNIA
     Route: 048
     Dates: start: 20000101
  14. LORTAB [Concomitant]
     Indication: ARTHRITIS
     Route: 048
     Dates: start: 20110705, end: 20110828
  15. TRAZODONE HCL [Concomitant]
     Indication: INSOMNIA
     Route: 048
     Dates: start: 20110101

REACTIONS (4)
  - HYPOKALAEMIA [None]
  - SYNCOPE [None]
  - HYPOTENSION [None]
  - HYPONATRAEMIA [None]
